FAERS Safety Report 6449086-3 (Version None)
Quarter: 2009Q4

REPORT INFORMATION
  Report Type: 
  Country: None (occurrence: None)
  Receive Date: 20091120
  Receipt Date: 20081222
  Transmission Date: 20100525
  Serious: Yes (Other)
  Sender: FDA-Public Use
  Company Number: US-BRISTOL-MYERS SQUIBB COMPANY-14472021

PATIENT
  Sex: Female

DRUGS (8)
  1. PRINZIDE [Suspect]
     Route: 048
  2. KENALOG [Suspect]
     Indication: ECZEMA
     Dosage: 80 MG OF KENALOG-40
  3. CLOBETASOL PROPIONATE [Suspect]
     Indication: ECZEMA
  4. NEXIUM [Concomitant]
  5. PRAVACHOL [Concomitant]
  6. SYNTHROID [Concomitant]
  7. TOPROL-XL [Concomitant]
  8. ASPIRIN [Concomitant]

REACTIONS (1)
  - CUTANEOUS LUPUS ERYTHEMATOSUS [None]
